FAERS Safety Report 9903282 (Version 1)
Quarter: 2014Q1

REPORT INFORMATION
  Report Type: Spontaneous
  Country: US (occurrence: US)
  Receive Date: 20140217
  Receipt Date: 20140217
  Transmission Date: 20141002
  Serious: No
  Sender: FDA-Public Use
  Company Number: US-GILEAD-2011-0047162

PATIENT
  Age: 60 Year
  Sex: Female

DRUGS (3)
  1. LETAIRIS [Suspect]
     Indication: PRODUCT USED FOR UNKNOWN INDICATION
     Dosage: 10 MG,
     Route: 048
     Dates: start: 20080702
  2. REVATIO [Concomitant]
  3. VENTAVIS [Concomitant]

REACTIONS (3)
  - Hypoaesthesia [Unknown]
  - Fall [Unknown]
  - Injury [Unknown]
